FAERS Safety Report 24307478 (Version 1)
Quarter: 2024Q3

REPORT INFORMATION
  Report Type: Spontaneous
  Country: US (occurrence: US)
  Receive Date: 20240911
  Receipt Date: 20240911
  Transmission Date: 20241016
  Serious: No
  Sender: REGENERON
  Company Number: US-REGENERON PHARMACEUTICALS, INC.-2024-081554

PATIENT
  Sex: Female

DRUGS (1)
  1. EYLEA HD [Suspect]
     Active Substance: AFLIBERCEPT
     Indication: Product used for unknown indication
     Dosage: UNK, INTO LEFT EYE (FORMULATION: HD VIAL)
     Route: 031

REACTIONS (2)
  - Eye haemorrhage [Recovering/Resolving]
  - Visual impairment [Recovering/Resolving]
